FAERS Safety Report 15639715 (Version 3)
Quarter: 2018Q4

REPORT INFORMATION
  Report Type: Spontaneous
  Country: FR (occurrence: FR)
  Receive Date: 20181120
  Receipt Date: 20181206
  Transmission Date: 20190205
  Serious: Yes (Hospitalization, Other)
  Sender: FDA-Public Use
  Company Number: FR-B.I. PHARMACEUTICALS,INC./RIDGEFIELD-2018-BI-056073

PATIENT
  Age: 79 Year
  Sex: Female
  Weight: 60 kg

DRUGS (1)
  1. PRADAXA [Suspect]
     Active Substance: DABIGATRAN ETEXILATE MESYLATE
     Indication: ATRIAL FIBRILLATION
     Route: 048
     Dates: end: 20181030

REACTIONS (8)
  - Blood immunoglobulin E [Unknown]
  - Anaemia [Unknown]
  - Anticoagulation drug level increased [Recovered/Resolved]
  - Anticoagulation drug level increased [Recovered/Resolved]
  - Haemoptysis [Recovered/Resolved]
  - Acute kidney injury [Unknown]
  - Asthenia [Unknown]
  - Eosinophilia [Recovering/Resolving]

NARRATIVE: CASE EVENT DATE: 201808
